FAERS Safety Report 14279486 (Version 1)
Quarter: 2017Q4

REPORT INFORMATION
  Report Type: Spontaneous
  Country: US (occurrence: US)
  Receive Date: 20171212
  Receipt Date: 20171212
  Transmission Date: 20180321
  Serious: No
  Sender: FDA-Public Use
  Company Number: US-PURDUE-USA-2017-0140576

PATIENT
  Sex: Female
  Weight: 81.63 kg

DRUGS (1)
  1. HYDROMORPHONE HCL (SIMILAR TO 19-892) [Suspect]
     Active Substance: HYDROMORPHONE HYDROCHLORIDE
     Indication: PAIN
     Dosage: 4 MG, PRN, 0-5 TIMES PER DAY
     Route: 048
     Dates: start: 2011

REACTIONS (4)
  - Suspected counterfeit product [Unknown]
  - Dysgeusia [Unknown]
  - Drug ineffective [Unknown]
  - Wrong technique in product usage process [Unknown]
